FAERS Safety Report 15462370 (Version 7)
Quarter: 2023Q2

REPORT INFORMATION
  Report Type: Report from Study
  Country: US (occurrence: US)
  Receive Date: 20181004
  Receipt Date: 20230405
  Transmission Date: 20230721
  Serious: Yes (Death, Life-Threatening, Hospitalization, Other)
  Sender: FDA-Public Use
  Company Number: US-BRISTOL-MYERS SQUIBB COMPANY-BMS-2018-090276

PATIENT
  Age: 73 Year
  Sex: Male
  Weight: 80.1 kg

DRUGS (3)
  1. NIVOLUMAB [Suspect]
     Active Substance: NIVOLUMAB
     Indication: Renal cell carcinoma
     Dosage: UNK
     Route: 042
     Dates: start: 20180828, end: 20180828
  2. HYTRIN [Concomitant]
     Active Substance: TERAZOSIN HYDROCHLORIDE
     Indication: Product used for unknown indication
     Dosage: UNK
  3. LIPITOR [Concomitant]
     Active Substance: ATORVASTATIN CALCIUM
     Indication: Product used for unknown indication

REACTIONS (14)
  - Ventricular tachycardia [Unknown]
  - Cardiac arrest [Recovered/Resolved]
  - Blood creatine phosphokinase increased [Recovered/Resolved]
  - Alanine aminotransferase increased [Recovered/Resolved]
  - Aspartate aminotransferase increased [Recovered/Resolved]
  - Vestibular disorder [Not Recovered/Not Resolved]
  - Myasthenia gravis [Fatal]
  - Troponin I increased [Recovered/Resolved]
  - Myositis [Not Recovered/Not Resolved]
  - Autoimmune hepatitis [Unknown]
  - Myocardial infarction [Recovered/Resolved]
  - Myocarditis [Unknown]
  - Dyspnoea [Recovered/Resolved]
  - Platelet count decreased [Recovered/Resolved]

NARRATIVE: CASE EVENT DATE: 20180901
